FAERS Safety Report 5535742-8 (Version None)
Quarter: 2007Q4

REPORT INFORMATION
  Report Type: 
  Country: None (occurrence: None)
  Receive Date: 20071206
  Receipt Date: 20070404
  Transmission Date: 20080405
  Serious: Yes (Hospitalization)
  Sender: FDA-Public Use
  Company Number: US-AMGEN-STX215994

PATIENT
  Sex: Female

DRUGS (5)
  1. ENBREL [Suspect]
     Indication: JUVENILE ARTHRITIS
     Route: 058
     Dates: start: 20060101
  2. ENBREL [Suspect]
     Route: 058
  3. VITAMIN D [Concomitant]
     Dates: start: 20070115
  4. FISH OIL [Concomitant]
  5. VITAMIN CAP [Concomitant]

REACTIONS (2)
  - EAR INFECTION [None]
  - INJECTION SITE REACTION [None]
